FAERS Safety Report 11143587 (Version 1)
Quarter: 2015Q2

REPORT INFORMATION
  Report Type: Report from Study
  Country: IT (occurrence: IT)
  Receive Date: 20150526
  Receipt Date: 20150526
  Transmission Date: 20150821
  Serious: Yes (Other)
  Sender: FDA-Public Use
  Company Number: IT-ACCORD-030957

PATIENT
  Sex: Male

DRUGS (2)
  1. MITOMYCIN. [Suspect]
     Active Substance: MITOMYCIN
     Indication: GASTRIC CANCER
     Dosage: 3.3 MG/M2/L OF PERFUSATE
     Route: 033
  2. CISPLATIN. [Suspect]
     Active Substance: CISPLATIN
     Indication: GASTRIC CANCER
     Dosage: SOLUTION OF POLYGELINE AND SALINE CONTAINING CISPLATIN 25 MG/M2/L OF PERFUSATE
     Route: 033

REACTIONS (2)
  - Hepatic failure [Unknown]
  - Off label use [Unknown]
